FAERS Safety Report 10746157 (Version 1)
Quarter: 2015Q1

REPORT INFORMATION
  Report Type: Report from Study
  Country: US (occurrence: US)
  Receive Date: 20150128
  Receipt Date: 20150128
  Transmission Date: 20150721
  Serious: Yes (Death, Life-Threatening, Other)
  Sender: FDA-Public Use
  Company Number: US-TEVA-537279USA

PATIENT

DRUGS (3)
  1. IBRUTINIB [Concomitant]
     Active Substance: IBRUTINIB
     Indication: NON-HODGKIN^S LYMPHOMA
     Dosage: UNK UNK, CYCLIC
     Route: 065
  2. BENDAMUSTINE HYDROCHLORIDE [Suspect]
     Active Substance: BENDAMUSTINE HYDROCHLORIDE
     Indication: NON-HODGKIN^S LYMPHOMA
     Route: 065
  3. RITUXIMAB [Concomitant]
     Active Substance: RITUXIMAB
     Indication: NON-HODGKIN^S LYMPHOMA
     Route: 065

REACTIONS (19)
  - Thrombocytopenia [Unknown]
  - Hyponatraemia [Unknown]
  - Pyrexia [Unknown]
  - Hyperuricaemia [Unknown]
  - Febrile neutropenia [Unknown]
  - Lymphopenia [Unknown]
  - Pancreatitis [Unknown]
  - Nausea [Unknown]
  - Vomiting [Unknown]
  - Fatigue [Unknown]
  - Infection [Unknown]
  - Hypertension [Unknown]
  - Infection [Fatal]
  - Rash [Unknown]
  - Neutropenia [Unknown]
  - Anaemia [Unknown]
  - Hypophosphataemia [Unknown]
  - Hypokalaemia [Unknown]
  - Hypotension [Unknown]
